FAERS Safety Report 10165146 (Version 1)
Quarter: 2014Q2

REPORT INFORMATION
  Report Type: Spontaneous
  Country: US (occurrence: US)
  Receive Date: 20140510
  Receipt Date: 20140510
  Transmission Date: 20141212
  Serious: No
  Sender: FDA-Public Use
  Company Number: US-BRISTOL-MYERS SQUIBB COMPANY-20314977

PATIENT
  Age: 74 Year
  Sex: Male
  Weight: 99.77 kg

DRUGS (8)
  1. BYDUREON [Suspect]
     Indication: TYPE 2 DIABETES MELLITUS
     Route: 058
     Dates: start: 2012
  2. METFORMIN [Concomitant]
  3. DILTIAZEM HCL [Concomitant]
  4. INDAPAMIDE [Concomitant]
  5. ALLOPURINOL [Concomitant]
  6. BENICAR [Concomitant]
  7. RAMIPRIL [Concomitant]
  8. ASPIRIN [Concomitant]

REACTIONS (3)
  - Injection site nodule [Recovering/Resolving]
  - Injection site extravasation [Unknown]
  - Product quality issue [Unknown]
